FAERS Safety Report 7113235-4 (Version None)
Quarter: 2010Q4

REPORT INFORMATION
  Report Type: 
  Country: None (occurrence: None)
  Receive Date: 20101119
  Receipt Date: 20100201
  Transmission Date: 20110411
  Serious: No
  Sender: FDA-Public Use
  Company Number: A0842345A

PATIENT
  Age: 20 Year
  Sex: Female

DRUGS (2)
  1. WELLBUTRIN SR [Suspect]
     Indication: DEPRESSION
     Dosage: 100MG TWICE PER DAY
     Route: 048
     Dates: start: 20091201, end: 20100130
  2. NO CONCURRENT MEDICATION [Concomitant]

REACTIONS (4)
  - AFFECT LABILITY [None]
  - ANGER [None]
  - MOOD ALTERED [None]
  - TEARFULNESS [None]
